FAERS Safety Report 13331753 (Version 1)
Quarter: 2017Q1

REPORT INFORMATION
  Report Type: Spontaneous
  Country: US (occurrence: US)
  Receive Date: 20170313
  Receipt Date: 20170313
  Transmission Date: 20170428
  Serious: Yes (Hospitalization)
  Sender: FDA-Public Use
  Company Number: None

PATIENT
  Age: 42 Year
  Sex: Female

DRUGS (1)
  1. GAMUNEX-C [Suspect]
     Active Substance: HUMAN IMMUNOGLOBULIN G
     Indication: MYASTHENIA GRAVIS
     Dosage: EVERY 4 WEEKS
     Route: 042
     Dates: start: 20170202

REACTIONS (6)
  - Chest discomfort [None]
  - Cough [None]
  - Inappropriate schedule of drug administration [None]
  - Wheezing [None]
  - Infusion related reaction [None]
  - Dyspnoea [None]

NARRATIVE: CASE EVENT DATE: 20170310
